FAERS Safety Report 17978630 (Version 3)
Quarter: 2020Q4

REPORT INFORMATION
  Report Type: Report from Study
  Country: US (occurrence: US)
  Receive Date: 20200703
  Receipt Date: 20201002
  Transmission Date: 20210113
  Serious: Yes (Hospitalization, Other)
  Sender: FDA-Public Use
  Company Number: US-PUMA BIOTECHNOLOGY, LTD.-2020US001345

PATIENT

DRUGS (38)
  1. LORAZEPAM. [Suspect]
     Active Substance: LORAZEPAM
     Indication: PRODUCT USED FOR UNKNOWN INDICATION
     Dosage: 0.5 MG
     Route: 048
  2. UCERIS [Concomitant]
     Active Substance: BUDESONIDE
     Indication: DIARRHOEA
     Dosage: 1 TABLET (9 MG), DAILY
     Route: 048
  3. VITAMIN D [COLECALCIFEROL] [Concomitant]
     Active Substance: CHOLECALCIFEROL
     Indication: PRODUCT USED FOR UNKNOWN INDICATION
     Dosage: 1000 IU, DAILY
     Route: 048
  4. NERLYNX [Suspect]
     Active Substance: NERATINIB
     Dosage: 4 TABLETS (160 MG), DAILY
     Route: 048
     Dates: start: 20200211, end: 20200217
  5. OXYCODONE [Suspect]
     Active Substance: OXYCODONE
     Indication: PAIN
     Dosage: UNK
  6. LISINOPRIL. [Concomitant]
     Active Substance: LISINOPRIL
     Indication: HYPERTENSION
  7. NERLYNX [Suspect]
     Active Substance: NERATINIB
     Dosage: 6 TABLETS (240 MG), DAILY
     Route: 048
     Dates: start: 20200506, end: 20200521
  8. VOLTAREN [DICLOFENAC] [Concomitant]
     Active Substance: DICLOFENAC SODIUM
     Indication: PRODUCT USED FOR UNKNOWN INDICATION
     Dosage: 4 G, QID
  9. FLECTOR [DICLOFENAC SODIUM] [Concomitant]
     Active Substance: DICLOFENAC SODIUM
     Indication: PRODUCT USED FOR UNKNOWN INDICATION
     Dosage: UNK
  10. SYNTHROID [Concomitant]
     Active Substance: LEVOTHYROXINE SODIUM
     Indication: HYPOTHYROIDISM
     Dosage: 1 TABLET (75 MCG), DAILY
     Route: 048
  11. ROXICODONE [Concomitant]
     Active Substance: OXYCODONE HYDROCHLORIDE
     Indication: PAIN
     Dosage: 1 TABLET (5 MG), Q4HR
     Route: 048
  12. PYRIDOXINE HCL [Concomitant]
     Active Substance: PYRIDOXINE HYDROCHLORIDE
     Indication: PRODUCT USED FOR UNKNOWN INDICATION
     Dosage: 1 TABLET (100 MG), DAILY
     Route: 048
  13. NERLYNX [Suspect]
     Active Substance: NERATINIB
     Indication: BREAST CANCER
     Dosage: 3 TABLETS (120 MG), DAILY
     Route: 048
     Dates: start: 20200204, end: 20200210
  14. NERLYNX [Suspect]
     Active Substance: NERATINIB
     Dosage: 3 TABLETS (120 MG), DAILY
     Route: 048
     Dates: start: 20200706, end: 2020
  15. ADDERALL [Concomitant]
     Active Substance: AMPHETAMINE ASPARTATE\AMPHETAMINE SULFATE\DEXTROAMPHETAMINE SACCHARATE\DEXTROAMPHETAMINE SULFATE
     Indication: PRODUCT USED FOR UNKNOWN INDICATION
     Dosage: 1 TABLET (5 MG), BID
     Route: 048
  16. LEXAPRO [Concomitant]
     Active Substance: ESCITALOPRAM OXALATE
     Indication: PRODUCT USED FOR UNKNOWN INDICATION
     Dosage: 1 TABLET (10 MG), DAILY
     Route: 048
  17. MAGNESIUM GLUCONATE [Concomitant]
     Active Substance: MAGNESIUM GLUCONATE
     Indication: PRODUCT USED FOR UNKNOWN INDICATION
     Dosage: 400 MG, DAILY
     Route: 048
  18. NARCAN [Concomitant]
     Active Substance: NALOXONE HYDROCHLORIDE
     Indication: TOXICITY TO VARIOUS AGENTS
  19. NERLYNX [Suspect]
     Active Substance: NERATINIB
     Dosage: 4 TABLETS (160 MG), DAILY
     Route: 048
     Dates: start: 202003, end: 202003
  20. ATARAX [Concomitant]
     Active Substance: HYDROXYZINE HYDROCHLORIDE
     Indication: PRODUCT USED FOR UNKNOWN INDICATION
     Dosage: 1 TABLET (10 MG), TID
     Route: 048
  21. OXYCONTIN [Concomitant]
     Active Substance: OXYCODONE HYDROCHLORIDE
     Indication: PRODUCT USED FOR UNKNOWN INDICATION
     Dosage: 1 TABLET (10 MG), BID
     Route: 048
  22. ZONEGRAN [Concomitant]
     Active Substance: ZONISAMIDE
     Indication: PRODUCT USED FOR UNKNOWN INDICATION
     Dosage: 1 CAPSULE, DAILY
     Route: 048
  23. NERLYNX [Suspect]
     Active Substance: NERATINIB
     Dosage: 5 TABLETS (200 MG), DAILY
     Route: 048
     Dates: start: 20200218, end: 20200224
  24. NERLYNX [Suspect]
     Active Substance: NERATINIB
     Dosage: 6 TABLETS (240 MG), DAILY
     Route: 048
     Dates: start: 20200225, end: 202002
  25. VITAMIN B COMPLEX [Concomitant]
     Active Substance: CYANOCOBALAMIN\DEXPANTHENOL\NIACINAMIDE\PYRIDOXINE HYDROCHLORIDE\RIBOFLAVIN 5^-PHOSPHATE SODIUM\THIAMINE HYDROCHLORIDE\VITAMIN B COMPLEX
     Indication: PRODUCT USED FOR UNKNOWN INDICATION
     Dosage: 1 CAPSULE, DAILY
     Route: 048
  26. BACTROBAN [Concomitant]
     Active Substance: MUPIROCIN\MUPIROCIN CALCIUM
     Indication: PRODUCT USED FOR UNKNOWN INDICATION
     Dosage: UNK UNK, DAILY
  27. NERLYNX [Suspect]
     Active Substance: NERATINIB
     Dosage: 6 TABLETS (240 MG), DAILY
     Route: 048
     Dates: start: 202007
  28. XELODA [Concomitant]
     Active Substance: CAPECITABINE
     Indication: PRODUCT USED FOR UNKNOWN INDICATION
     Dosage: 2 TABLET (500 MG), BID
     Dates: start: 20200212
  29. ZOMETA [Concomitant]
     Active Substance: ZOLEDRONIC ACID
     Indication: BONE DISORDER
     Dosage: UNK
     Dates: start: 201911, end: 20200511
  30. TYLENOL [Concomitant]
     Active Substance: ACETAMINOPHEN
     Indication: PRODUCT USED FOR UNKNOWN INDICATION
     Dosage: 3 TABLETS (975 MG), TID
  31. IMODIUM [Concomitant]
     Active Substance: LOPERAMIDE HYDROCHLORIDE
     Indication: DIARRHOEA
     Dosage: 2 CAPSULES (4 MG), TID
     Route: 048
  32. NERLYNX [Suspect]
     Active Substance: NERATINIB
     Dosage: 5 TABLETS (200 MG), DAILY
     Route: 048
     Dates: start: 202003, end: 202003
  33. NERLYNX [Suspect]
     Active Substance: NERATINIB
     Dosage: 6 TABLETS (240 MG), DAILY
     Route: 048
     Dates: start: 20200330, end: 20200401
  34. TEMOVATE [Concomitant]
     Active Substance: CLOBETASOL PROPIONATE
     Indication: PRODUCT USED FOR UNKNOWN INDICATION
     Dosage: UNK, BID
     Route: 061
  35. NEURONTIN [Concomitant]
     Active Substance: GABAPENTIN
     Indication: PRODUCT USED FOR UNKNOWN INDICATION
     Dosage: 1 CAPSULE (300 MG), TID
     Route: 048
  36. PRINIVIL [Concomitant]
     Active Substance: LISINOPRIL
     Indication: PRODUCT USED FOR UNKNOWN INDICATION
     Dosage: 1 TABLET (5 MG), DAILY
     Route: 048
  37. ZOFRAN [Concomitant]
     Active Substance: ONDANSETRON HYDROCHLORIDE
     Indication: NAUSEA
     Dosage: 1 TABLET (8 MG), QID
     Route: 048
  38. PROAIR HFA [Concomitant]
     Active Substance: ALBUTEROL SULFATE
     Indication: WHEEZING
     Dosage: 2 PUFFS, Q6HR

REACTIONS (13)
  - Cancer pain [Recovering/Resolving]
  - Pain in extremity [Recovering/Resolving]
  - Drug titration [Unknown]
  - Loss of consciousness [Recovering/Resolving]
  - Abdominal discomfort [Unknown]
  - Disease progression [Unknown]
  - Diarrhoea [Recovering/Resolving]
  - Neuralgia [Recovering/Resolving]
  - Neck pain [Recovering/Resolving]
  - Electrocardiogram QT prolonged [Recovering/Resolving]
  - Dyspepsia [Unknown]
  - Muscular weakness [Recovering/Resolving]
  - Nausea [Recovering/Resolving]

NARRATIVE: CASE EVENT DATE: 2020
